FAERS Safety Report 5499163-9 (Version None)
Quarter: 2007Q4

REPORT INFORMATION
  Report Type: 
  Country: None (occurrence: None)
  Receive Date: 20071026
  Receipt Date: 20071023
  Transmission Date: 20080405
  Serious: Yes (Hospitalization, Other)
  Sender: FDA-Public Use
  Company Number: IT-BRISTOL-MYERS SQUIBB COMPANY-13943386

PATIENT
  Age: 32 Year
  Sex: Male

DRUGS (1)
  1. BARACLUDE TABS [Suspect]
     Indication: HEPATITIS CHRONIC ACTIVE
     Dosage: DOSAGE REDUCED TO 0.5 MG/DAILY ON 13-OCT-2007
     Route: 048
     Dates: start: 20070801

REACTIONS (4)
  - DIPLOPIA [None]
  - HEADACHE [None]
  - INTERVERTEBRAL DISC PROTRUSION [None]
  - MALOCCLUSION [None]
